FAERS Safety Report 22695885 (Version 3)
Quarter: 2025Q2

REPORT INFORMATION
  Report Type: Spontaneous
  Country: US (occurrence: US)
  Receive Date: 20230712
  Receipt Date: 20250521
  Transmission Date: 20250717
  Serious: Yes (Other)
  Sender: ROCHE
  Company Number: US-ROCHE-3383732

PATIENT
  Age: 78 Year
  Sex: Male
  Weight: 79.83 kg

DRUGS (2)
  1. VABYSMO [Suspect]
     Active Substance: FARICIMAB-SVOA
     Indication: Neovascular age-related macular degeneration
     Dosage: INJECTION IN LEFT EYE
     Route: 050
  2. VABYSMO [Suspect]
     Active Substance: FARICIMAB-SVOA
     Dosage: INJECTION IN LEFT EYE, 6MG/ 0.05 ML ??ON 05/JUN/2023, HE RECEIVED HIS MOST RECENT INJECTION OF VABYS
     Route: 050
     Dates: start: 20220612

REACTIONS (2)
  - Occipital lobe stroke [Not Recovered/Not Resolved]
  - Blindness [Not Recovered/Not Resolved]

NARRATIVE: CASE EVENT DATE: 20230606
